FAERS Safety Report 23598734 (Version 1)
Quarter: 2024Q1

REPORT INFORMATION
  Report Type: Spontaneous
  Country: IT (occurrence: IT)
  Receive Date: 20240306
  Receipt Date: 20240306
  Transmission Date: 20240409
  Serious: Yes (Hospitalization, Other)
  Sender: FDA-Public Use
  Company Number: IT-862174955-ML2024-01388

PATIENT
  Age: 50 Year
  Sex: Male

DRUGS (2)
  1. SODIUM NITROPRUSSIDE [Suspect]
     Active Substance: SODIUM NITROPRUSSIDE
     Indication: Cardiac failure acute
     Dosage: 2.47 ?G/KG/MIN
  2. EPINEPHRINE [Concomitant]
     Active Substance: EPINEPHRINE
     Indication: Cardiac failure acute
     Dosage: 0.05 ?G/KG/MIN

REACTIONS (2)
  - Calcium deficiency [Recovering/Resolving]
  - Toxicity to various agents [Recovering/Resolving]
